FAERS Safety Report 21017504 (Version 1)
Quarter: 2022Q2

REPORT INFORMATION
  Report Type: Spontaneous
  Country: US (occurrence: None)
  Receive Date: 20220627
  Receipt Date: 20220627
  Transmission Date: 20220721
  Serious: Yes (Death)
  Sender: FDA-Public Use
  Company Number: None

PATIENT
  Age: 89 Year
  Sex: Female
  Weight: 55.38 kg

DRUGS (9)
  1. IMATINIB [Suspect]
     Active Substance: IMATINIB
     Indication: Acute myeloid leukaemia
     Dosage: FREQUENCY : DAILY;?
     Route: 048
  2. ACYCLOVIR [Concomitant]
     Active Substance: ACYCLOVIR
  3. PREDNISONE [Concomitant]
     Active Substance: PREDNISONE
  4. METOPROLOL [Concomitant]
     Active Substance: METOPROLOL
  5. REMERON [Concomitant]
     Active Substance: MIRTAZAPINE
  6. FUROSEMIDE [Concomitant]
     Active Substance: FUROSEMIDE
  7. FLECAINIDE [Concomitant]
     Active Substance: FLECAINIDE
  8. POTASSIUM CHLORIDE [Concomitant]
     Active Substance: POTASSIUM CHLORIDE
  9. VERAPAMIL [Concomitant]
     Active Substance: VERAPAMIL HYDROCHLORIDE

REACTIONS (1)
  - Death [None]

NARRATIVE: CASE EVENT DATE: 20220621
